FAERS Safety Report 7074892-4 (Version None)
Quarter: 2010Q4

REPORT INFORMATION
  Report Type: 
  Country: None (occurrence: None)
  Receive Date: 20101029
  Receipt Date: 20101020
  Transmission Date: 20110411
  Serious: Yes (Hospitalization, Other)
  Sender: FDA-Public Use
  Company Number: US-AMGEN-USASP2010001559

PATIENT

DRUGS (1)
  1. PROCRIT [Suspect]
     Indication: ANAEMIA
     Dosage: 10000 IU, QWK
     Route: 058
     Dates: start: 19900101

REACTIONS (4)
  - HIP ARTHROPLASTY [None]
  - KNEE OPERATION [None]
  - PRURITUS [None]
  - RENAL TRANSPLANT [None]
